FAERS Safety Report 25088630 (Version 2)
Quarter: 2025Q1

REPORT INFORMATION
  Report Type: Spontaneous
  Country: AU (occurrence: AU)
  Receive Date: 20250318
  Receipt Date: 20250325
  Transmission Date: 20250409
  Serious: Yes (Death, Hospitalization)
  Sender: MYLAN
  Company Number: AU-MYLANLABS-2025M1022534

PATIENT
  Age: 50 Year
  Sex: Male

DRUGS (20)
  1. CLOZARIL [Suspect]
     Active Substance: CLOZAPINE
     Indication: Schizophrenia
  2. FLUVOXAMINE [Concomitant]
     Active Substance: FLUVOXAMINE
     Indication: Depression
     Dosage: 1 DOSAGE FORM, QD (BREAKFAST)
  3. FLUVOXAMINE [Concomitant]
     Active Substance: FLUVOXAMINE
     Indication: Depressed mood
  4. VALPROATE SODIUM [Concomitant]
     Active Substance: VALPROATE SODIUM
     Indication: Epilepsy
     Dosage: 1 DOSAGE FORM, BID (AT BREAKFAST AND BEDTIME)  (SWALLOW WHOLE WITH FOOD. DO NOT CRUSH OR CHEW THE TABLETS, REGULAR USE IS ESSENTIAL)
  5. VALPROATE SODIUM [Concomitant]
     Active Substance: VALPROATE SODIUM
     Indication: Epilepsy
     Dosage: 1 DOSAGE FORM, QD (AT BEDTIME) (SWALLOW WHOLE WITH FOOD. DO NOT CRUSH OR CHEW THE TABLETS, REGULAR USE IS ESSENTIAL)
  6. EPILIM [Concomitant]
     Active Substance: VALPROATE SODIUM
     Indication: Epilepsy
     Dosage: 1 DOSAGE FORM, QD (AT BEDTIME) (THE TABLETS CAN BE CRUSHED AND ADDED TO FOOD OR DRINKS IF NECESSARY)
  7. CHOLECALCIFEROL [Concomitant]
     Active Substance: CHOLECALCIFEROL
     Indication: Vitamin D deficiency
     Dosage: 2 DOSAGE FORM, BID (AT BREAKFAST AND BEDTIME)
  8. CHOLECALCIFEROL [Concomitant]
     Active Substance: CHOLECALCIFEROL
     Indication: Bone density decreased
  9. ATORVASTATIN [Concomitant]
     Active Substance: ATORVASTATIN
     Indication: Blood cholesterol increased
     Dosage: 1 DOSAGE FORM, QD (AT BEDTIME)
  10. FISH OIL [Concomitant]
     Active Substance: FISH OIL
     Indication: Blood cholesterol increased
     Dosage: 3 GRAM, BID (AT BREAKFAST AND BEDTIME)
  11. FISH OIL [Concomitant]
     Active Substance: FISH OIL
     Indication: Arthritis
  12. FISH OIL [Concomitant]
     Active Substance: FISH OIL
     Indication: Blood cholesterol increased
     Dosage: 3 GRAM, BID (AT BREAKFAST AND BEDTIME)
  13. FISH OIL [Concomitant]
     Active Substance: FISH OIL
     Indication: Arthritis
  14. INSULIN ASPART [Concomitant]
     Active Substance: INSULIN ASPART
     Indication: Diabetes mellitus
     Dosage: 30 DOSAGE FORM, BID (100UNITS/ML, AFTER BREAKFAST AND DINNER) (FAST ACTING PLUS LONG ACTING COMBINATION)
  15. INSULIN ASPART [Concomitant]
     Active Substance: INSULIN ASPART
  16. NICOTINELL [Concomitant]
     Active Substance: NICOTINE
     Indication: Nicotine dependence
     Dosage: UNK, QD (ON, AFTER BREAKFAST)
  17. ACETAMINOPHEN [Concomitant]
     Active Substance: ACETAMINOPHEN
     Indication: Pain
  18. ACETAMINOPHEN [Concomitant]
     Active Substance: ACETAMINOPHEN
     Indication: Pyrexia
  19. POLYETHYLENE GLYCOL 3350 [Concomitant]
     Active Substance: POLYETHYLENE GLYCOL 3350
     Indication: Constipation
  20. BECLOMETHASONE\FORMOTEROL [Concomitant]
     Active Substance: BECLOMETHASONE\FORMOTEROL
     Indication: Asthma

REACTIONS (2)
  - Death [Fatal]
  - Hospitalisation [Recovered/Resolved]

NARRATIVE: CASE EVENT DATE: 20250308
